FAERS Safety Report 19060588 (Version 2)
Quarter: 2021Q2

REPORT INFORMATION
  Report Type: Spontaneous
  Country: AU (occurrence: AU)
  Receive Date: 20210326
  Receipt Date: 20210524
  Transmission Date: 20210717
  Serious: Yes (Other)
  Sender: FDA-Public Use
  Company Number: AU-SA-2021SA102126

PATIENT
  Age: 14 Year
  Sex: Male

DRUGS (1)
  1. DUPILUMAB [Suspect]
     Active Substance: DUPILUMAB
     Indication: DERMATITIS ATOPIC
     Dosage: 200 MG
     Route: 058
     Dates: start: 20210308

REACTIONS (2)
  - Syncope [Recovered/Resolved]
  - Joint injury [Unknown]

NARRATIVE: CASE EVENT DATE: 20210325
